FAERS Safety Report 9309936 (Version 2)
Quarter: 2013Q2

REPORT INFORMATION
  Report Type: Spontaneous
  Country: GB (occurrence: GB)
  Receive Date: 20130527
  Receipt Date: 20130531
  Transmission Date: 20140414
  Serious: Yes (Hospitalization)
  Sender: FDA-Public Use
  Company Number: GB-009507513-1302GBR000738

PATIENT
  Age: 59 Year
  Sex: Male
  Weight: 99.9 kg

DRUGS (7)
  1. SYCREST [Suspect]
     Indication: BIPOLAR I DISORDER
     Dosage: 10 MG TWICE PER DAY
     Route: 060
     Dates: start: 20121119
  2. SYCREST [Suspect]
     Dosage: 10 MG, QD
     Route: 048
     Dates: start: 20130212
  3. DEPAKOTE [Concomitant]
     Indication: AFFECTIVE DISORDER
     Dosage: 500 MG, BID
     Dates: start: 20121112
  4. DOXAZOSIN MESYLATE [Concomitant]
     Indication: GENERAL PHYSICAL HEALTH DETERIORATION
     Dosage: 8 MG, BID
     Dates: start: 20121108
  5. AMLODIPINE [Concomitant]
     Indication: GENERAL PHYSICAL HEALTH DETERIORATION
     Dosage: 10 MG, QD
     Dates: start: 20121108
  6. SIMVASTATIN [Concomitant]
     Indication: GENERAL PHYSICAL HEALTH DETERIORATION
     Dosage: 10 MG, QD
     Dates: start: 20121108
  7. CLONAZEPAM [Concomitant]
     Indication: AGGRESSION
     Dosage: 1 MG, QOD
     Dates: start: 20121112, end: 20121130

REACTIONS (3)
  - Hypersomnia [Recovering/Resolving]
  - Gait disturbance [Recovering/Resolving]
  - Amnesia [Recovering/Resolving]
